FAERS Safety Report 13495709 (Version 2)
Quarter: 2017Q2

REPORT INFORMATION
  Report Type: Spontaneous
  Country: US (occurrence: US)
  Receive Date: 20170428
  Receipt Date: 20170523
  Transmission Date: 20170830
  Serious: Yes (Hospitalization)
  Sender: FDA-Public Use
  Company Number: US-B.I. PHARMACEUTICALS,INC./RIDGEFIELD-2017-BI-023549

PATIENT
  Age: 75 Year
  Sex: Male
  Weight: 97.98 kg

DRUGS (11)
  1. LIPITOR [Concomitant]
     Active Substance: ATORVASTATIN CALCIUM
     Indication: LIPIDS ABNORMAL
     Dosage: DOSE-10
     Route: 065
     Dates: start: 20140812
  2. BENADRYL [Concomitant]
     Active Substance: DIPHENHYDRAMINE HYDROCHLORIDE
     Indication: MULTIPLE ALLERGIES
  3. IMDUR [Concomitant]
     Active Substance: ISOSORBIDE MONONITRATE
     Indication: CARDIAC DISORDER
     Dosage: DOSE-30
     Route: 065
     Dates: start: 20140812
  4. NITROGLYCERIN. [Concomitant]
     Active Substance: NITROGLYCERIN
     Indication: CARDIAC DISORDER
     Dosage: DOSE-0.4 AS NEEDED
     Route: 065
     Dates: start: 20130811
  5. DILTIAZEM. [Concomitant]
     Active Substance: DILTIAZEM
     Indication: CARDIAC DISORDER
     Dosage: DOSE-120
     Route: 065
     Dates: start: 20130811
  6. BENADRYL [Concomitant]
     Active Substance: DIPHENHYDRAMINE HYDROCHLORIDE
     Indication: SLEEP DISORDER
     Dosage: DOSE-25
     Route: 065
  7. JANUVIA [Concomitant]
     Active Substance: SITAGLIPTIN PHOSPHATE
     Indication: TYPE 2 DIABETES MELLITUS
     Dosage: DOSE-100
     Route: 065
     Dates: start: 20150505
  8. XARELTO [Concomitant]
     Active Substance: RIVAROXABAN
     Indication: ATRIAL FIBRILLATION
     Dosage: DOSE-20,EVERY NIGHT
     Route: 065
  9. METOPROLOL. [Concomitant]
     Active Substance: METOPROLOL
     Indication: CARDIAC DISORDER
     Dosage: DOSE-50
     Route: 065
  10. JARDIANCE [Suspect]
     Active Substance: EMPAGLIFLOZIN
     Indication: TYPE 2 DIABETES MELLITUS
     Dosage: 1 TABLET ONCE A DAY;  FORM STRENGTH: 10 MG; FORMULATION: TABLET? ADMINISTRATION CORRECT? NR(NOT REPO
     Route: 048
     Dates: start: 20170124, end: 20170217
  11. METFORMIN [Concomitant]
     Active Substance: METFORMIN HYDROCHLORIDE
     Indication: TYPE 2 DIABETES MELLITUS
     Dosage: DOSE-500
     Route: 065
     Dates: start: 20140609

REACTIONS (1)
  - Atrial fibrillation [Recovered/Resolved]

NARRATIVE: CASE EVENT DATE: 20170212
